FAERS Safety Report 13883948 (Version 2)
Quarter: 2017Q4

REPORT INFORMATION
  Report Type: Spontaneous
  Country: ZA (occurrence: ZA)
  Receive Date: 20170820
  Receipt Date: 20171023
  Transmission Date: 20180320
  Serious: Yes (Death, Hospitalization, Other)
  Sender: FDA-Public Use
  Company Number: ZA-MYLANLABS-2017M1050051

PATIENT
  Age: 70 Year
  Sex: Female

DRUGS (13)
  1. MYLAN OXYBUTYNIN 5 MG [Suspect]
     Active Substance: OXYBUTYNIN
     Indication: BLADDER DISORDER
     Dosage: 5 MG, QD
  2. METHOTREXATE. [Suspect]
     Active Substance: METHOTREXATE
     Indication: PSORIASIS
  3. TOPRAZ (PANTOPRAZOLE SODIUM SESQUIHYDRATE) [Suspect]
     Active Substance: PANTOPRAZOLE SODIUM
     Indication: ASTHMA
     Dosage: 10 MG, QD
  4. TOPRAZ (PANTOPRAZOLE SODIUM SESQUIHYDRATE) [Suspect]
     Active Substance: PANTOPRAZOLE SODIUM
     Indication: COUGH
  5. NUZAK [Suspect]
     Active Substance: FLUOXETINE HYDROCHLORIDE
     Indication: DEPRESSION
     Dosage: 20 MG, QD
  6. FERRIMED (FERRIC HYDROXIDE POLYMALTOSE COMPLEX) [Suspect]
     Active Substance: IRON POLYMALTOSE
     Indication: MINERAL SUPPLEMENTATION
     Dosage: 2 DF, QD
  7. SYMBICORD [Suspect]
     Active Substance: BUDESONIDE\FORMOTEROL
     Indication: EMPHYSEMA
     Dosage: 1 DF, BID
  8. STILNOX [Suspect]
     Active Substance: ZOLPIDEM TARTRATE
     Indication: INITIAL INSOMNIA
     Dosage: 12.5 MG, QD
  9. TRAMAZAC CO [Suspect]
     Active Substance: ACETAMINOPHEN\TRAMADOL
     Indication: INFLAMMATORY PAIN
     Dosage: 2 DF, QD
  10. TOPRAZ (PANTOPRAZOLE SODIUM SESQUIHYDRATE) [Suspect]
     Active Substance: PANTOPRAZOLE SODIUM
     Indication: RHINITIS ALLERGIC
  11. FOLIC ACID. [Suspect]
     Active Substance: FOLIC ACID
     Indication: SUPPLEMENTATION THERAPY
     Dosage: 5 MG, QD
  12. PULMISON [Suspect]
     Active Substance: PREDNISONE
     Indication: SYSTEMIC INFLAMMATORY RESPONSE SYNDROME
     Dosage: 20 MG, QD
  13. METHOTREXATE. [Suspect]
     Active Substance: METHOTREXATE
     Indication: RHEUMATOID ARTHRITIS
     Dosage: 1 DF, QD

REACTIONS (3)
  - Secretion discharge [Unknown]
  - Death [Fatal]
  - Dyspnoea [Unknown]

NARRATIVE: CASE EVENT DATE: 20170831
